FAERS Safety Report 25664603 (Version 1)
Quarter: 2025Q3

REPORT INFORMATION
  Report Type: Spontaneous
  Country: US (occurrence: None)
  Receive Date: 20250808
  Receipt Date: 20250808
  Transmission Date: 20251020
  Serious: Yes (Hospitalization)
  Sender: FDA-CTU
  Company Number: None

PATIENT
  Age: 86 Year
  Sex: Male
  Weight: 76.9 kg

DRUGS (4)
  1. RUXOLITINIB [Suspect]
     Active Substance: RUXOLITINIB
     Indication: Chronic myeloid leukaemia
     Dosage: 10 MH TWICE A DAY ORAL
     Route: 048
     Dates: start: 20250718
  2. IVOSIDENIB [Suspect]
     Active Substance: IVOSIDENIB
     Indication: Chronic myeloid leukaemia
     Dosage: 250 MG TWICE A DAY ORAL ?
     Route: 048
     Dates: start: 20250718
  3. RUXOLITINIB [Concomitant]
     Active Substance: RUXOLITINIB
     Dates: start: 20250718
  4. IVOSIDENIB [Concomitant]
     Active Substance: IVOSIDENIB
     Dates: start: 20250718

REACTIONS (4)
  - Catheter site haemorrhage [None]
  - Wound haemorrhage [None]
  - Wound secretion [None]
  - Haemoglobin decreased [None]

NARRATIVE: CASE EVENT DATE: 20250807
